FAERS Safety Report 6499147-8 (Version None)
Quarter: 2009Q4

REPORT INFORMATION
  Report Type: 
  Country: None (occurrence: None)
  Receive Date: 20091127
  Receipt Date: 20090414
  Transmission Date: 20100525
  Serious: Yes (Other)
  Sender: FDA-Public Use
  Company Number: WAES 0806USA08540

PATIENT
  Age: 56 Year
  Sex: Female

DRUGS (1)
  1. FOSAMAX [Suspect]
     Indication: OSTEOPOROSIS
     Dosage: 70 MG/PO
     Route: 048
     Dates: start: 20011005, end: 20060401

REACTIONS (14)
  - BLOOD CHOLESTEROL INCREASED [None]
  - BONE DISORDER [None]
  - DENTAL CARIES [None]
  - FALL [None]
  - GINGIVAL DISORDER [None]
  - HYPERTENSION [None]
  - IMPAIRED HEALING [None]
  - JOINT INJURY [None]
  - LIMB INJURY [None]
  - ORAL INFECTION [None]
  - OSTEOMYELITIS [None]
  - OSTEONECROSIS [None]
  - RHEUMATOID ARTHRITIS [None]
  - TOOTH ABSCESS [None]
